FAERS Safety Report 23295386 (Version 1)
Quarter: 2023Q4

REPORT INFORMATION
  Report Type: Spontaneous
  Country: DE (occurrence: DE)
  Receive Date: 20231214
  Receipt Date: 20231214
  Transmission Date: 20240109
  Serious: Yes (Death)
  Sender: FDA-Public Use
  Company Number: DE-Merz Pharmaceuticals GmbH-23-03910

PATIENT
  Sex: Female

DRUGS (1)
  1. XEOMIN [Suspect]
     Active Substance: INCOBOTULINUMTOXINA
     Indication: Parkinsonism

REACTIONS (2)
  - Asphyxia [Fatal]
  - Off label use [Unknown]

NARRATIVE: CASE EVENT DATE: 20080101
